FAERS Safety Report 4475130-9 (Version None)
Quarter: 2004Q4

REPORT INFORMATION
  Report Type: 
  Country: None (occurrence: None)
  Receive Date: 20041013
  Receipt Date: 20041013
  Transmission Date: 20050328
  Serious: Yes (Hospitalization)
  Sender: FDA-Public Use
  Company Number: None

PATIENT
  Age: 6 Year
  Sex: Female

DRUGS (16)
  1. LYSODREN [Suspect]
     Indication: ADRENAL CARCINOMA
     Dosage: 1500 MG TID ORAL
     Route: 048
  2. FLORINEF [Concomitant]
  3. . [Concomitant]
  4. PREVACID [Concomitant]
  5. . [Concomitant]
  6. ALBUTEROL-PROVENTIL [Concomitant]
  7. . [Concomitant]
  8. HYDROXYZINE-VISTARIL [Concomitant]
  9. . [Concomitant]
  10. ZOFRAN [Concomitant]
  11. . [Concomitant]
  12. HYDROCORTISONE-CRTEF [Concomitant]
  13. . [Concomitant]
  14. MAGNESIUM OXIDE [Concomitant]
  15. FILGASTRINEUPOGEN [Concomitant]
  16. . [Concomitant]

REACTIONS (10)
  - ABASIA [None]
  - BALANCE DISORDER [None]
  - CLONUS [None]
  - COGWHEEL RIGIDITY [None]
  - DROOLING [None]
  - DRUG LEVEL ABOVE THERAPEUTIC [None]
  - INTENTION TREMOR [None]
  - LETHARGY [None]
  - MENTAL STATUS CHANGES [None]
  - SPEECH DISORDER [None]
